FAERS Safety Report 4713805-4 (Version None)
Quarter: 2005Q3

REPORT INFORMATION
  Report Type: 
  Country: None (occurrence: None)
  Receive Date: 20050712
  Receipt Date: 20050629
  Transmission Date: 20060218
  Serious: Yes (Hospitalization, Other)
  Sender: FDA-Public Use
  Company Number: 2005095946

PATIENT
  Age: 61 Year
  Sex: Female
  Weight: 111.1313 kg

DRUGS (14)
  1. CELEBREX [Suspect]
     Indication: OSTEOARTHRITIS
     Dosage: 200 MG (200 MG, 1 IN 1 D), ORAL
     Route: 048
  2. ALL OTHER THERAPEUTIC PRODUCTS (ALL OTHER THERAPEUTIC PRODUCTS) [Suspect]
     Indication: CONVULSION
     Dosage: ORAL
     Route: 048
     Dates: start: 20050201, end: 20050401
  3. POTASSIUM CHLORIDE [Concomitant]
  4. HYZAAR [Concomitant]
  5. CALCIUM (CALCIUM) [Concomitant]
  6. ASPIRIN [Concomitant]
  7. NEXIUM [Concomitant]
  8. ALLEGRA [Concomitant]
  9. RESTORIL [Concomitant]
  10. XANAX [Concomitant]
  11. FIORICET [Concomitant]
  12. LORCET-HD [Concomitant]
  13. AXERT [Concomitant]
  14. ROBAXIN [Concomitant]

REACTIONS (6)
  - ACCIDENTAL POISONING [None]
  - BODY HEIGHT DECREASED [None]
  - COMPRESSION FRACTURE [None]
  - CONVULSION [None]
  - FALL [None]
  - SPINAL COMPRESSION FRACTURE [None]
